FAERS Safety Report 8807329 (Version 1)
Quarter: 2012Q4

REPORT INFORMATION
  Report Type: Report from Study
  Country: US (occurrence: US)
  Receive Date: 20120925
  Receipt Date: 20120925
  Transmission Date: 20130627
  Serious: Yes (Other)
  Sender: FDA-Public Use
  Company Number: US-ROCHE-1127428

PATIENT
  Sex: Female
  Weight: 79 kg

DRUGS (2)
  1. ROACTEMRA [Suspect]
     Indication: PRODUCT USED FOR UNKNOWN INDICATION
     Route: 042
     Dates: start: 20120712
  2. ROACTEMRA [Suspect]
     Route: 042
     Dates: start: 20120809, end: 20120809

REACTIONS (1)
  - Chest pain [Recovered/Resolved]
